FAERS Safety Report 9031482 (Version 1)
Quarter: 2013Q1

REPORT INFORMATION
  Report Type: Spontaneous
  Country: JP (occurrence: JP)
  Receive Date: 20130124
  Receipt Date: 20130124
  Transmission Date: 20140127
  Serious: Yes (Other)
  Sender: FDA-Public Use
  Company Number: JP-JNJFOC-20121107200

PATIENT
  Age: 78 Year
  Sex: Male

DRUGS (8)
  1. FINIBAX [Suspect]
     Indication: OSTEOMYELITIS
     Dosage: 0.25 G TWICE DAILY
     Route: 041
     Dates: start: 20121015, end: 20121109
  2. CUBICIN [Suspect]
     Indication: OSTEOMYELITIS
     Route: 041
     Dates: start: 20121015, end: 20121110
  3. ARICEPT D [Concomitant]
     Indication: DEMENTIA
     Route: 048
  4. ITOROL [Concomitant]
     Indication: ANGINA PECTORIS
     Route: 048
  5. BUFFERIN [Concomitant]
     Indication: PERIPHERAL ARTERIAL OCCLUSIVE DISEASE
     Route: 048
  6. PLAVIX [Concomitant]
     Indication: PERIPHERAL ARTERIAL OCCLUSIVE DISEASE
     Route: 048
  7. ANPLAG [Concomitant]
     Indication: PERIPHERAL ARTERIAL OCCLUSIVE DISEASE
     Route: 048
  8. TAKEPRON [Concomitant]
     Indication: GASTROINTESTINAL MUCOSAL DISORDER
     Route: 048

REACTIONS (1)
  - Interstitial lung disease [Recovering/Resolving]
